FAERS Safety Report 7511230-4 (Version None)
Quarter: 2011Q2

REPORT INFORMATION
  Report Type: 
  Country: None (occurrence: None)
  Receive Date: 20110531
  Receipt Date: 20110523
  Transmission Date: 20111010
  Serious: Yes (Other)
  Sender: FDA-Public Use
  Company Number: US-JNJFOC-20110201182

PATIENT
  Sex: Male

DRUGS (9)
  1. AVELOX [Suspect]
     Indication: SINUSITIS
     Route: 065
     Dates: start: 20020501
  2. PREDNISONE [Suspect]
     Indication: SINUSITIS
     Route: 065
  3. PREDNISONE [Suspect]
     Indication: OTITIS MEDIA ACUTE
     Route: 065
  4. CIPROFLOXACIN [Suspect]
     Indication: PRODUCT USED FOR UNKNOWN INDICATION
     Route: 048
  5. PREDNISONE [Suspect]
     Indication: BRONCHITIS
     Route: 065
  6. LEVAQUIN [Suspect]
     Indication: BRONCHITIS
     Route: 048
     Dates: start: 19990501
  7. METHYLPREDNISOLONE [Suspect]
     Indication: PRODUCT USED FOR UNKNOWN INDICATION
     Route: 048
  8. LEVAQUIN [Suspect]
     Indication: SINUSITIS
     Route: 048
     Dates: start: 19990501
  9. LEVAQUIN [Suspect]
     Indication: OTITIS MEDIA ACUTE
     Route: 048
     Dates: start: 19990501

REACTIONS (4)
  - JOINT INSTABILITY [None]
  - LIGAMENT LAXITY [None]
  - LIGAMENT RUPTURE [None]
  - TENDON RUPTURE [None]
